FAERS Safety Report 16600530 (Version 7)
Quarter: 2020Q1

REPORT INFORMATION
  Report Type: Spontaneous
  Country: JP (occurrence: JP)
  Receive Date: 20190719
  Receipt Date: 20200312
  Transmission Date: 20200409
  Serious: Yes (Death, Hospitalization, Other)
  Sender: FDA-Public Use
  Company Number: JP-ASTRAZENECA-2019SF00798

PATIENT
  Age: 70 Year
  Sex: Male

DRUGS (3)
  1. IMFINZI [Suspect]
     Active Substance: DURVALUMAB
     Indication: NON-SMALL CELL LUNG CANCER
     Route: 041
     Dates: start: 20181116, end: 20181214
  2. TAGRISSO [Suspect]
     Active Substance: OSIMERTINIB
     Indication: NON-SMALL CELL LUNG CANCER
     Route: 048
     Dates: start: 20190104, end: 20190318
  3. TAGRISSO [Suspect]
     Active Substance: OSIMERTINIB
     Indication: NON-SMALL CELL LUNG CANCER
     Route: 048
     Dates: start: 20190403, end: 20190621

REACTIONS (8)
  - Interstitial lung disease [Fatal]
  - Malignant neoplasm progression [Fatal]
  - Venous thrombosis limb [Unknown]
  - Hepatic function abnormal [Recovered/Resolved]
  - Atelectasis [Unknown]
  - Radiation pneumonitis [Unknown]
  - Pulmonary artery thrombosis [Fatal]
  - Malignant pleural effusion [Unknown]

NARRATIVE: CASE EVENT DATE: 20181214
